FAERS Safety Report 4379393-X (Version None)
Quarter: 2004Q2

REPORT INFORMATION
  Report Type: 
  Country: None (occurrence: None)
  Receive Date: 20040617
  Receipt Date: 20040218
  Transmission Date: 20050107
  Serious: Yes (Other)
  Sender: FDA-Public Use
  Company Number: JP-JNJFOC-20040300385

PATIENT
  Age: 51 Year
  Sex: Male

DRUGS (14)
  1. REMICADE [Suspect]
     Route: 042
  2. REMICADE [Suspect]
     Indication: RHEUMATOID ARTHRITIS
     Route: 042
  3. ALPROSTADIL [Concomitant]
  4. FAMOTIDINE [Concomitant]
  5. LOXOPROFEN SODIUM [Concomitant]
  6. MAGNESIUM OXIDE [Concomitant]
  7. MECOBALAMIN [Concomitant]
  8. METHOTREXATE [Concomitant]
  9. MIZORIBINE [Concomitant]
  10. PREDNISOLONE [Concomitant]
  11. SULFASALAZINE [Concomitant]
  12. SARPOGRELATE HYDROCHLORIDE [Concomitant]
  13. WARFARIN POTASSIUM [Concomitant]
  14. LAC 8 [Concomitant]

REACTIONS (1)
  - LEG AMPUTATION [None]
